FAERS Safety Report 16007723 (Version 2)
Quarter: 2019Q1

REPORT INFORMATION
  Report Type: Spontaneous
  Country: GB (occurrence: GB)
  Receive Date: 20190226
  Receipt Date: 20190311
  Transmission Date: 20190418
  Serious: Yes (Disabling)
  Sender: FDA-Public Use
  Company Number: GB-TEVA-2019-GB-1015390

PATIENT
  Age: 26 Year
  Sex: Male
  Weight: 75 kg

DRUGS (4)
  1. CIPROFLOXACIN HYDROCHLORIDE. [Suspect]
     Active Substance: CIPROFLOXACIN HYDROCHLORIDE
     Indication: DIARRHOEA HAEMORRHAGIC
     Dosage: 1000 MILLIGRAM DAILY;
     Route: 048
     Dates: start: 20180122, end: 20180127
  2. DESLORATADINE. [Concomitant]
     Active Substance: DESLORATADINE
  3. AVAMYS [Concomitant]
     Active Substance: FLUTICASONE FUROATE
  4. OMEPRAZOLE. [Concomitant]
     Active Substance: OMEPRAZOLE

REACTIONS (3)
  - Myalgia [Not Recovered/Not Resolved]
  - Inflammation [Not Recovered/Not Resolved]
  - Tendon disorder [Not Recovered/Not Resolved]

NARRATIVE: CASE EVENT DATE: 20190124
